FAERS Safety Report 23925749 (Version 3)
Quarter: 2024Q3

REPORT INFORMATION
  Report Type: Report from Study
  Country: JP (occurrence: JP)
  Receive Date: 20240531
  Receipt Date: 20240830
  Transmission Date: 20241016
  Serious: Yes (Other)
  Sender: JOHNSON AND JOHNSON
  Company Number: JP-JNJFOC-20230122126

PATIENT

DRUGS (1)
  1. ERLEADA [Suspect]
     Active Substance: APALUTAMIDE
     Indication: Hormone-refractory prostate cancer
     Dosage: DOSE UNKNOWN
     Route: 048

REACTIONS (4)
  - Osteonecrosis of jaw [Unknown]
  - Rash [Unknown]
  - Fatigue [Unknown]
  - Hypogeusia [Unknown]
